FAERS Safety Report 6436720-7 (Version None)
Quarter: 2009Q4

REPORT INFORMATION
  Report Type: 
  Country: None (occurrence: None)
  Receive Date: 20091110
  Receipt Date: 20080417
  Transmission Date: 20100525
  Serious: No
  Sender: FDA-Public Use
  Company Number: AEUSA200800100

PATIENT
  Age: 48 Year
  Sex: Female

DRUGS (1)
  1. GAMUNEX [Suspect]
     Indication: POLYNEUROPATHY
     Dosage: 40 GM;QM;IV
     Route: 042
     Dates: start: 20060101, end: 20080401

REACTIONS (4)
  - INFUSION RELATED REACTION [None]
  - NO REACTION ON PREVIOUS EXPOSURE TO DRUG [None]
  - RASH [None]
  - URTICARIA [None]
